FAERS Safety Report 5924717-2 (Version None)
Quarter: 2008Q4

REPORT INFORMATION
  Report Type: 
  Country: None (occurrence: None)
  Receive Date: 20081016
  Receipt Date: 20081003
  Transmission Date: 20090506
  Serious: Yes (Other)
  Sender: FDA-Public Use
  Company Number: 2008S1016338

PATIENT
  Age: 55 Year
  Sex: Female
  Weight: 77.1115 kg

DRUGS (11)
  1. FENTANYL TRANSDERMAL SYSTEM [Suspect]
     Indication: ARACHNOIDITIS
     Dosage: 25 UG;EVERY HOUR;TRANSDERMAL
     Route: 062
     Dates: start: 20080501, end: 20080601
  2. FENTANYL TRANSDERMAL SYSTEM [Suspect]
     Indication: BACK PAIN
     Dosage: 25 UG;EVERY HOUR;TRANSDERMAL
     Route: 062
     Dates: start: 20080501, end: 20080601
  3. FENTANYL TRANSDERMAL SYSTEM [Suspect]
     Indication: PSEUDOMENINGOCELE
     Dosage: 25 UG;EVERY HOUR;TRANSDERMAL
     Route: 062
     Dates: start: 20080501, end: 20080601
  4. FENTANYL TRANSDERMAL SYSTEM [Suspect]
     Indication: ARACHNOIDITIS
     Dosage: 50 UG;EVERY HOUR;TRANSDERMAL
     Route: 062
     Dates: start: 20080601, end: 20080701
  5. FENTANYL TRANSDERMAL SYSTEM [Suspect]
     Indication: BACK PAIN
     Dosage: 50 UG;EVERY HOUR;TRANSDERMAL
     Route: 062
     Dates: start: 20080601, end: 20080701
  6. FENTANYL TRANSDERMAL SYSTEM [Suspect]
     Indication: PSEUDOMENINGOCELE
     Dosage: 50 UG;EVERY HOUR;TRANSDERMAL
     Route: 062
     Dates: start: 20080601, end: 20080701
  7. OXYCODONE AND ACETAMINOPHEN [Concomitant]
  8. SOMA [Concomitant]
  9. VALIUM [Concomitant]
  10. WARFARIN SODIUM [Concomitant]
  11. TYLENOL [Concomitant]

REACTIONS (4)
  - BACK PAIN [None]
  - CONDITION AGGRAVATED [None]
  - DRUG INEFFECTIVE [None]
  - PRODUCT QUALITY ISSUE [None]
